FAERS Safety Report 9151730 (Version 1)
Quarter: 2013Q1

REPORT INFORMATION
  Report Type: Spontaneous
  Country: US (occurrence: US)
  Receive Date: 20130308
  Receipt Date: 20130308
  Transmission Date: 20140127
  Serious: Yes (Hospitalization)
  Sender: FDA-Public Use
  Company Number: US-GLAXOSMITHKLINE-A0723722A

PATIENT
  Age: 54 Year
  Sex: Male

DRUGS (1)
  1. AVANDIA [Suspect]
     Indication: DIABETES MELLITUS
     Dosage: 8MG PER DAY
     Route: 048
     Dates: start: 20040604, end: 2007

REACTIONS (5)
  - Myocardial infarction [Not Recovered/Not Resolved]
  - Cerebrovascular accident [Unknown]
  - Ventricular tachycardia [Unknown]
  - Transient ischaemic attack [Unknown]
  - Cardiac failure congestive [Unknown]
